FAERS Safety Report 6307408-8 (Version None)
Quarter: 2009Q3

REPORT INFORMATION
  Report Type: 
  Country: None (occurrence: None)
  Receive Date: 20090810
  Receipt Date: 20090729
  Transmission Date: 20100115
  Serious: Yes (Hospitalization)
  Sender: FDA-Public Use
  Company Number: 2009AL001943

PATIENT

DRUGS (11)
  1. DIGOXIN [Suspect]
     Dosage: 0.25MG, DAILY, PO
     Route: 048
     Dates: start: 20010420
  2. LOPRESSOR [Concomitant]
  3. LISINOPRIL [Concomitant]
  4. ADVAIR HFA [Concomitant]
  5. ATROVENT [Concomitant]
  6. LASIX [Concomitant]
  7. METOPROLOL [Concomitant]
  8. ISOSORBIDE [Concomitant]
  9. PRAVASTATIN [Concomitant]
  10. NEXIUM [Concomitant]
  11. SPIRONOLACTONE [Concomitant]

REACTIONS (21)
  - ANGINA PECTORIS [None]
  - ASTHENIA [None]
  - ATRIAL FIBRILLATION [None]
  - BRONCHITIS [None]
  - CARDIOACTIVE DRUG LEVEL INCREASED [None]
  - CHRONIC OBSTRUCTIVE PULMONARY DISEASE [None]
  - CORONARY ARTERY DISEASE [None]
  - CORONARY ARTERY OCCLUSION [None]
  - COUGH [None]
  - CULTURE POSITIVE [None]
  - DILATATION VENTRICULAR [None]
  - DYSPNOEA [None]
  - ECONOMIC PROBLEM [None]
  - EJECTION FRACTION DECREASED [None]
  - HEART RATE INCREASED [None]
  - INJURY [None]
  - LEFT VENTRICULAR END-DIASTOLIC PRESSURE INCREASED [None]
  - NAUSEA [None]
  - RENAL FAILURE ACUTE [None]
  - SURGERY [None]
  - THERAPEUTIC AGENT TOXICITY [None]
